FAERS Safety Report 24320483 (Version 1)
Quarter: 2024Q3

REPORT INFORMATION
  Report Type: Spontaneous
  Country: PE (occurrence: PE)
  Receive Date: 20240915
  Receipt Date: 20240915
  Transmission Date: 20241016
  Serious: Yes (Other)
  Sender: ROCHE
  Company Number: PE-ROCHE-10000079489

PATIENT
  Sex: Female

DRUGS (1)
  1. HERCEPTIN [Suspect]
     Active Substance: TRASTUZUMAB
     Indication: Breast cancer metastatic
     Dosage: DOSE AND FEQUENCY WERE NOT REPORTED
     Route: 065

REACTIONS (3)
  - Metastases to lung [Unknown]
  - Metastases to skin [Unknown]
  - Scar [Unknown]
